FAERS Safety Report 11772533 (Version 4)
Quarter: 2016Q4

REPORT INFORMATION
  Report Type: Spontaneous
  Country: US (occurrence: US)
  Receive Date: 20151124
  Receipt Date: 20161209
  Transmission Date: 20170206
  Serious: Yes (Hospitalization, Other)
  Sender: FDA-Public Use
  Company Number: US-PFIZER INC-2015396768

PATIENT
  Age: 39 Year
  Sex: Male
  Weight: 39 kg

DRUGS (6)
  1. NICOTROL [Suspect]
     Active Substance: NICOTINE
     Indication: SMOKING CESSATION THERAPY
     Dosage: FIVE TIMES A MONTH
     Dates: start: 201501, end: 201612
  2. ARTHROTEC [Suspect]
     Active Substance: DICLOFENAC SODIUM\MISOPROSTOL
     Indication: BACK PAIN
  3. QUINAPRIL. [Concomitant]
     Active Substance: QUINAPRIL
     Indication: BLOOD PRESSURE MEASUREMENT
     Dosage: 20 MG, 1X/DAY
     Route: 048
     Dates: start: 199501
  4. VIAGRA [Suspect]
     Active Substance: SILDENAFIL CITRATE
     Indication: HYPERTENSION
     Dosage: 100 MG, AS NEEDED
     Route: 048
     Dates: start: 200407
  5. VIAGRA [Suspect]
     Active Substance: SILDENAFIL CITRATE
     Indication: ERECTILE DYSFUNCTION
     Dosage: 25 MG, 2X/WEEK
     Dates: start: 199501
  6. ARTHROTEC [Suspect]
     Active Substance: DICLOFENAC SODIUM\MISOPROSTOL
     Indication: HYPERTENSION
     Dosage: ONCE A DAY AS NEEDED
     Dates: start: 201206

REACTIONS (4)
  - Cough [Recovered/Resolved]
  - Pneumothorax [Recovered/Resolved]
  - Lung disorder [Recovered/Resolved]
  - Malaise [Unknown]

NARRATIVE: CASE EVENT DATE: 201301
